FAERS Safety Report 14409711 (Version 1)
Quarter: 2018Q1

REPORT INFORMATION
  Report Type: Spontaneous
  Country: ES (occurrence: ES)
  Receive Date: 20180119
  Receipt Date: 20180119
  Transmission Date: 20180509
  Serious: Yes (Other)
  Sender: FDA-Public Use
  Company Number: ES-ALKEM LABORATORIES LIMITED-ES-ALKEM-2017-01226

PATIENT
  Age: 12 Year
  Sex: Male

DRUGS (3)
  1. LINEZOLID. [Suspect]
     Active Substance: LINEZOLID
     Indication: ARTHRITIS BACTERIAL
  2. LINEZOLID. [Suspect]
     Active Substance: LINEZOLID
     Indication: OSTEOARTHRITIS
     Route: 065
  3. LINEZOLID. [Suspect]
     Active Substance: LINEZOLID
     Indication: OSTEOMYELITIS CHRONIC

REACTIONS (2)
  - Toxicity to various agents [Recovered/Resolved]
  - Bone marrow failure [Recovered/Resolved]
